FAERS Safety Report 7659264-3 (Version None)
Quarter: 2011Q3

REPORT INFORMATION
  Report Type: 
  Country: None (occurrence: None)
  Receive Date: 20110805
  Receipt Date: 20110726
  Transmission Date: 20111222
  Serious: Yes (Other)
  Sender: FDA-Public Use
  Company Number: US-ROCHE-719236

PATIENT
  Sex: Male
  Weight: 85.3 kg

DRUGS (2)
  1. ACCUTANE [Suspect]
     Indication: ACNE
     Route: 065
     Dates: start: 19991115
  2. ACCUTANE [Suspect]
     Route: 065
     Dates: start: 19991130, end: 20000301

REACTIONS (8)
  - INFLAMMATORY BOWEL DISEASE [None]
  - EPISTAXIS [None]
  - COLON ADENOMA [None]
  - DEPRESSION [None]
  - DRY SKIN [None]
  - CHAPPED LIPS [None]
  - ACNE [None]
  - SUICIDAL IDEATION [None]
